FAERS Safety Report 4751831-X (Version None)
Quarter: 2005Q3

REPORT INFORMATION
  Report Type: 
  Country: None (occurrence: None)
  Receive Date: 20050822
  Receipt Date: 20050719
  Transmission Date: 20060218
  Serious: No
  Sender: FDA-Public Use
  Company Number: PHEH2005US08023

PATIENT
  Age: 41 Year
  Sex: Female

DRUGS (2)
  1. ZELNORM [Suspect]
     Dosage: 6 MG, QD, ORAL
     Route: 048
     Dates: start: 20050401, end: 20050718
  2. CELEXA [Suspect]
     Dates: end: 20050718

REACTIONS (1)
  - LIVER FUNCTION TEST ABNORMAL [None]
